FAERS Safety Report 16761202 (Version 1)
Quarter: 2019Q3

REPORT INFORMATION
  Report Type: Spontaneous
  Country: US (occurrence: US)
  Receive Date: 20190830
  Receipt Date: 20190830
  Transmission Date: 20191005
  Serious: No
  Sender: FDA-Public Use
  Company Number: US-ANIPHARMA-2019-US-007406

PATIENT
  Age: 64 Year
  Sex: Female
  Weight: 104.33 kg

DRUGS (6)
  1. HYDROCHLOROTHIAZIDE (HCTZ) [Concomitant]
     Active Substance: HYDROCHLOROTHIAZIDE
  2. POTASSIUM CALTRATE [Concomitant]
  3. UNSPECIFIED MEDICATED CREAM [Concomitant]
     Route: 061
  4. SYNTHROID [Concomitant]
     Active Substance: LEVOTHYROXINE SODIUM
  5. ARIMIDEX [Suspect]
     Active Substance: ANASTROZOLE
     Indication: BREAST CANCER
     Dosage: 1MG DAILY
     Route: 048
     Dates: start: 201301
  6. UNSPECIFIED MEDICATED SHAMPOO [Concomitant]
     Route: 061

REACTIONS (3)
  - Pain [Not Recovered/Not Resolved]
  - Night sweats [Not Recovered/Not Resolved]
  - Paraesthesia [Not Recovered/Not Resolved]

NARRATIVE: CASE EVENT DATE: 201904
